FAERS Safety Report 6070044-5 (Version None)
Quarter: 2009Q1

REPORT INFORMATION
  Report Type: 
  Country: None (occurrence: None)
  Receive Date: 20090209
  Receipt Date: 20090131
  Transmission Date: 20090719
  Serious: Yes (Other)
  Sender: FDA-Public Use
  Company Number: PHHY2009BR03803

PATIENT
  Age: 47 Year
  Sex: Female

DRUGS (1)
  1. FORASEQ [Suspect]
     Dosage: UNK
     Dates: start: 20090128, end: 20090131

REACTIONS (7)
  - CANDIDIASIS [None]
  - CHEST DISCOMFORT [None]
  - OEDEMA PERIPHERAL [None]
  - POLLAKIURIA [None]
  - THIRST [None]
  - VAGINAL ODOUR [None]
  - VULVOVAGINAL BURNING SENSATION [None]
